FAERS Safety Report 8172736-0 (Version None)
Quarter: 2012Q1

REPORT INFORMATION
  Report Type: 
  Country: None (occurrence: None)
  Receive Date: 20120229
  Receipt Date: 20120225
  Transmission Date: 20120608
  Serious: Yes (Life-Threatening, Hospitalization)
  Sender: FDA-Public Use
  Company Number: US-US-EMD SERONO, INC.-7110190

PATIENT
  Sex: Female

DRUGS (7)
  1. EFFEXOR [Concomitant]
  2. TOPAMAX [Concomitant]
  3. REBIF [Suspect]
     Indication: MULTIPLE SCLEROSIS
     Route: 058
     Dates: start: 20080130, end: 20111001
  4. REBIF [Suspect]
     Route: 058
     Dates: start: 20120209
  5. NORVASC [Concomitant]
     Indication: HYPERTENSION
  6. NEXIUM [Concomitant]
  7. VESICARE [Concomitant]

REACTIONS (3)
  - INTESTINAL PERFORATION [None]
  - PNEUMONIA [None]
  - IDIOPATHIC THROMBOCYTOPENIC PURPURA [None]
